FAERS Safety Report 6274417-7 (Version None)
Quarter: 2009Q3

REPORT INFORMATION
  Report Type: 
  Country: None (occurrence: None)
  Receive Date: 20090720
  Receipt Date: 20090710
  Transmission Date: 20100115
  Serious: Yes (Other)
  Sender: FDA-Public Use
  Company Number: US-PFIZER INC-2009220364

PATIENT
  Sex: Male
  Weight: 106.12 kg

DRUGS (6)
  1. LIPITOR [Suspect]
     Indication: BLOOD CHOLESTEROL INCREASED
     Dosage: 40 MG, 1X/DAY
     Dates: start: 20071219, end: 20090501
  2. LIPITOR [Suspect]
     Indication: CORONARY ARTERY DISEASE
  3. ZOCOR [Concomitant]
  4. HYDROCHLOROTHIAZIDE [Concomitant]
  5. ASPIRIN [Concomitant]
  6. AMLODIPINE + OLMESARTAN (AZOR) [Concomitant]

REACTIONS (3)
  - ANXIETY [None]
  - LABORATORY TEST ABNORMAL [None]
  - MUSCULOSKELETAL CHEST PAIN [None]
